FAERS Safety Report 17029914 (Version 1)
Quarter: 2019Q4

REPORT INFORMATION
  Report Type: Spontaneous
  Country: JP (occurrence: JP)
  Receive Date: 20191114
  Receipt Date: 20191114
  Transmission Date: 20200122
  Serious: Yes (Other)
  Sender: FDA-Public Use
  Company Number: JP-TEVA-2019-JP-1137258

PATIENT
  Age: 72 Year
  Sex: Male

DRUGS (4)
  1. ROTIGOTINE [Concomitant]
     Active Substance: ROTIGOTINE
  2. AZILECT [Suspect]
     Active Substance: RASAGILINE MESYLATE
     Indication: PRODUCT USED FOR UNKNOWN INDICATION
     Route: 065
  3. LEVODOPA [Concomitant]
     Active Substance: LEVODOPA
  4. DROXIDOPA [Concomitant]
     Active Substance: DROXIDOPA

REACTIONS (6)
  - Movement disorder [Unknown]
  - Akinesia [Unknown]
  - Muscle rigidity [Unknown]
  - Tremor [Unknown]
  - Postural reflex impairment [Unknown]
  - Orthostatic hypotension [Unknown]
